FAERS Safety Report 13782283 (Version 2)
Quarter: 2018Q4

REPORT INFORMATION
  Report Type: Spontaneous
  Country: IT (occurrence: IT)
  Receive Date: 20170724
  Receipt Date: 20181126
  Transmission Date: 20190204
  Serious: Yes (Hospitalization)
  Sender: FDA-Public Use
  Company Number: IT-SA-2017SA131306

PATIENT
  Age: 90 Year
  Sex: Male

DRUGS (8)
  1. ENALAPRIL [Concomitant]
     Active Substance: ENALAPRIL
     Dosage: UNK UNK,UNK
     Route: 048
  2. OMEPRAZOLE. [Concomitant]
     Active Substance: OMEPRAZOLE
     Dosage: UNK UNK,UNK
     Route: 048
  3. FUROSEMIDE. [Concomitant]
     Active Substance: FUROSEMIDE
     Dosage: UNK UNK,UNK
     Route: 048
  4. ACETYLSALICYLIC ACID [Concomitant]
     Active Substance: ASPIRIN
     Dosage: UNK UNK,UNK
     Route: 048
  5. NEBIVOLOL. [Concomitant]
     Active Substance: NEBIVOLOL
     Dosage: UNK UNK,UNK
     Route: 048
  6. GLIMEPIRIDE. [Suspect]
     Active Substance: GLIMEPIRIDE
     Indication: DIABETES MELLITUS
     Dosage: 1 DF,QD
     Route: 048
     Dates: start: 20170101, end: 20170505
  7. TICLOPIDINE [Concomitant]
     Active Substance: TICLOPIDINE
     Dosage: UNK UNK,UNK
     Route: 048
  8. ALLOPURINOL. [Concomitant]
     Active Substance: ALLOPURINOL
     Dosage: UNK UNK,UNK
     Route: 048

REACTIONS (2)
  - Hypoglycaemia [Unknown]
  - Confusional state [Unknown]

NARRATIVE: CASE EVENT DATE: 20170505
